FAERS Safety Report 4666836-7 (Version None)
Quarter: 2005Q2

REPORT INFORMATION
  Report Type: 
  Country: None (occurrence: None)
  Receive Date: 20050518
  Receipt Date: 20050202
  Transmission Date: 20051028
  Serious: Yes (Other)
  Sender: FDA-Public Use
  Company Number: 2005026393

PATIENT
  Age: 29 Year
  Sex: Female
  Weight: 79.3795 kg

DRUGS (3)
  1. DEPO-PROVERA [Suspect]
     Indication: CONTRACEPTION
     Dosage: UNK (1ST INJECTION, EVERY 3 MONTHS), UNKNOWN
     Route: 065
     Dates: start: 19950101, end: 19950101
  2. VICODIN [Concomitant]
  3. MORPHINE [Concomitant]

REACTIONS (1)
  - BONE DENSITY DECREASED [None]
